FAERS Safety Report 4734473-1 (Version None)
Quarter: 2005Q3

REPORT INFORMATION
  Report Type: 
  Country: None (occurrence: None)
  Receive Date: 20050729
  Receipt Date: 20050714
  Transmission Date: 20060218
  Serious: Yes (Hospitalization)
  Sender: FDA-Public Use
  Company Number: 2005PV000327

PATIENT
  Age: 72 Year
  Sex: Male

DRUGS (3)
  1. BYETTA [Suspect]
     Dosage: 5 UG; BID; SC
     Route: 058
     Dates: start: 20050612, end: 20050701
  2. BYETTA [Suspect]
     Dosage: 5 UG; BID; SC
     Route: 058
     Dates: start: 20050701, end: 20050701
  3. INSULIN [Concomitant]

REACTIONS (4)
  - ANGIOGRAM ABNORMAL [None]
  - ARTERIAL OCCLUSIVE DISEASE [None]
  - BLOOD CREATININE INCREASED [None]
  - BLOOD GLUCOSE INCREASED [None]
